FAERS Safety Report 17754699 (Version 2)
Quarter: 2020Q2

REPORT INFORMATION
  Report Type: Spontaneous
  Country: PL (occurrence: PL)
  Receive Date: 20200506
  Receipt Date: 20200515
  Transmission Date: 20200714
  Serious: Yes (Other)
  Sender: FDA-Public Use
  Company Number: PL-BAXTER-2020BAX009121

PATIENT
  Age: 50 Year
  Sex: Female

DRUGS (9)
  1. FLUOROURACIL. [Concomitant]
     Active Substance: FLUOROURACIL
     Indication: BREAST CANCER FEMALE
     Route: 065
  2. ANASTROZOLE. [Concomitant]
     Active Substance: ANASTROZOLE
     Indication: BREAST CANCER FEMALE
     Route: 065
  3. FULVESTRANT. [Concomitant]
     Active Substance: FULVESTRANT
     Indication: BREAST CANCER FEMALE
     Route: 065
  4. TAMOXIFEN [Suspect]
     Active Substance: TAMOXIFEN
     Indication: BREAST CANCER FEMALE
     Route: 065
     Dates: start: 2016, end: 201705
  5. TAMOXIFEN [Suspect]
     Active Substance: TAMOXIFEN
     Route: 065
  6. RIBOCICLIB. [Concomitant]
     Active Substance: RIBOCICLIB
     Indication: BREAST CANCER FEMALE
     Route: 065
  7. ZOLEDRONIC ACID CLARIS, 4 MG/5 ML, KONCENTRAT DO SPORZADZANIA ROZTWORU [Suspect]
     Active Substance: ZOLEDRONIC ACID
     Indication: PRODUCT USED FOR UNKNOWN INDICATION
     Route: 065
     Dates: start: 2016, end: 201705
  8. DOXORUBICIN [Concomitant]
     Active Substance: DOXORUBICIN
     Indication: BREAST CANCER FEMALE
     Route: 065
  9. ENDOXAN [Suspect]
     Active Substance: CYCLOPHOSPHAMIDE
     Indication: BREAST CANCER FEMALE
     Route: 065

REACTIONS (4)
  - Malignant neoplasm progression [Unknown]
  - Blood disorder [Unknown]
  - Metastases to lung [Unknown]
  - Metastases to bone [Unknown]
